FAERS Safety Report 25910890 (Version 1)
Quarter: 2025Q4

REPORT INFORMATION
  Report Type: Spontaneous
  Country: US (occurrence: US)
  Receive Date: 20251013
  Receipt Date: 20251013
  Transmission Date: 20260118
  Serious: No
  Sender: ROCHE
  Company Number: US-ROCHE-10000404450

PATIENT
  Sex: Female
  Weight: 45.63 kg

DRUGS (4)
  1. ACTEMRA [Suspect]
     Active Substance: TOCILIZUMAB
     Indication: Systemic sclerosis pulmonary
     Dosage: STRENGTH: 162MG/0.9M
     Route: 058
     Dates: start: 202501
  2. ACTEMRA [Suspect]
     Active Substance: TOCILIZUMAB
     Indication: Interstitial lung disease
  3. OFEV [Concomitant]
     Active Substance: NINTEDANIB
     Indication: Systemic sclerosis pulmonary
  4. OFEV [Concomitant]
     Active Substance: NINTEDANIB
     Indication: Interstitial lung disease

REACTIONS (3)
  - Dyspnoea [Unknown]
  - Dizziness [Unknown]
  - Abnormal loss of weight [Unknown]
